FAERS Safety Report 9269689 (Version 1)
Quarter: 2013Q2

REPORT INFORMATION
  Report Type: Spontaneous
  Country: US (occurrence: US)
  Receive Date: 20130503
  Receipt Date: 20130503
  Transmission Date: 20140414
  Serious: Yes (Hospitalization)
  Sender: FDA-Public Use
  Company Number: US-BAYER-2013-053347

PATIENT
  Age: 19 Year
  Sex: Female

DRUGS (7)
  1. YAZ [Suspect]
     Dosage: UNK
  2. CONCERTA [Concomitant]
     Dosage: UNK
     Dates: start: 20110511
  3. SYNTHROID [Concomitant]
     Dosage: UNK
     Dates: start: 20110511
  4. FOLIC ACID [Concomitant]
     Dosage: UNK
     Dates: start: 20110511
  5. B12 [Concomitant]
     Dosage: UNK
     Route: 048
     Dates: start: 20110511
  6. PERCOCET [Concomitant]
     Indication: HEADACHE
     Dosage: UNK
  7. PAXIL [Concomitant]
     Dosage: UNK

REACTIONS (1)
  - Cerebral venous thrombosis [Recovered/Resolved]
